FAERS Safety Report 8274557-7 (Version None)
Quarter: 2012Q2

REPORT INFORMATION
  Report Type: 
  Country: None (occurrence: None)
  Receive Date: 20120411
  Receipt Date: 20120404
  Transmission Date: 20120825
  Serious: No
  Sender: FDA-Public Use
  Company Number: US-BAYER-2012-033936

PATIENT
  Age: 89 Year
  Sex: Female
  Weight: 50 kg

DRUGS (4)
  1. OMEPRAZOLE [Concomitant]
  2. FISH OIL [Concomitant]
  3. ALEVE (CAPLET) [Suspect]
     Dosage: 1 UNK, UNK
     Route: 048
     Dates: start: 20120201, end: 20120301
  4. ALEVE (CAPLET) [Suspect]
     Indication: ANALGESIC THERAPY
     Dosage: 1 U, UNK
     Route: 048
     Dates: start: 20120326

REACTIONS (1)
  - NO ADVERSE EVENT [None]
